FAERS Safety Report 20894007 (Version 2)
Quarter: 2022Q3

REPORT INFORMATION
  Report Type: Spontaneous
  Country: JP (occurrence: JP)
  Receive Date: 20220531
  Receipt Date: 20220701
  Transmission Date: 20221027
  Serious: Yes (Hospitalization, Other)
  Sender: FDA-Public Use
  Company Number: JP-ASTELLAS-2022JP007858

PATIENT
  Age: 65 Year
  Sex: Female

DRUGS (3)
  1. PROGRAF [Suspect]
     Active Substance: TACROLIMUS
     Indication: Lupus nephritis
     Dosage: 2 MG/DAY, UNKNOWN FREQ.
     Route: 048
  2. PREDNISOLONE [Concomitant]
     Active Substance: PREDNISOLONE
     Indication: Lupus nephritis
     Dosage: UNK UNK, UNKNOWN FREQ.
     Route: 065
  3. PREDNISOLONE [Concomitant]
     Active Substance: PREDNISOLONE
     Indication: Systemic lupus erythematosus

REACTIONS (3)
  - Acute disseminated encephalomyelitis [Recovering/Resolving]
  - Neuropsychiatric lupus [Recovering/Resolving]
  - Herpes zoster meningoencephalitis [Recovering/Resolving]
